FAERS Safety Report 18004331 (Version 2)
Quarter: 2020Q3

REPORT INFORMATION
  Report Type: Report from Study
  Country: US (occurrence: US)
  Receive Date: 20200709
  Receipt Date: 20200714
  Transmission Date: 20201103
  Serious: Yes (Other)
  Sender: FDA-Public Use
  Company Number: US-JNJFOC-20200511958

PATIENT
  Age: 41 Year
  Sex: Female

DRUGS (2)
  1. STELARA [Suspect]
     Active Substance: USTEKINUMAB
     Indication: COLITIS ULCERATIVE
     Route: 058
     Dates: start: 20200506
  2. STELARA [Suspect]
     Active Substance: USTEKINUMAB
     Indication: CROHN^S DISEASE
     Route: 042
     Dates: start: 20200506

REACTIONS (5)
  - Off label use [Unknown]
  - Headache [Not Recovered/Not Resolved]
  - Colitis ulcerative [Recovering/Resolving]
  - Product use issue [Unknown]
  - Campylobacter infection [Recovering/Resolving]

NARRATIVE: CASE EVENT DATE: 2020
